FAERS Safety Report 6550717-8 (Version None)
Quarter: 2010Q1

REPORT INFORMATION
  Report Type: 
  Country: None (occurrence: None)
  Receive Date: 20100125
  Receipt Date: 20100112
  Transmission Date: 20100710
  Serious: Yes (Hospitalization, Other)
  Sender: FDA-Public Use
  Company Number: PHHY2010MX01805

PATIENT
  Age: 78 Year
  Sex: Female

DRUGS (1)
  1. DIOVAN [Suspect]
     Indication: HYPERTENSION
     Dosage: 320 MG, QD
     Route: 048
     Dates: end: 20100101

REACTIONS (6)
  - BLOOD PRESSURE INCREASED [None]
  - EMBOLISM [None]
  - MOBILITY DECREASED [None]
  - PULMONARY THROMBOSIS [None]
  - THERMAL BURN [None]
  - THROMBOSIS [None]
